FAERS Safety Report 7045383-1 (Version None)
Quarter: 2010Q4

REPORT INFORMATION
  Report Type: 
  Country: None (occurrence: None)
  Receive Date: 20101014
  Receipt Date: 20100827
  Transmission Date: 20110411
  Serious: No
  Sender: FDA-Public Use
  Company Number: US-ALLERGAN-1011144US

PATIENT
  Age: 37 Year
  Sex: Female

DRUGS (1)
  1. LATISSE [Suspect]
     Indication: EYELASH THICKENING
     Dosage: UNK
     Dates: start: 20100823, end: 20100823

REACTIONS (5)
  - ERYTHEMA OF EYELID [None]
  - EYELID IRRITATION [None]
  - EYELID OEDEMA [None]
  - EYELIDS PRURITUS [None]
  - WRONG TECHNIQUE IN DRUG USAGE PROCESS [None]
